FAERS Safety Report 9361474 (Version 1)
Quarter: 2013Q2

REPORT INFORMATION
  Report Type: Spontaneous
  Country: US (occurrence: US)
  Receive Date: 20130621
  Receipt Date: 20130621
  Transmission Date: 20140414
  Serious: Yes (Hospitalization)
  Sender: FDA-Public Use
  Company Number: US-TARO PHARMACEUTICALS U.S.A., INC-2013SUN00825

PATIENT
  Age: 73 Year
  Sex: Female

DRUGS (1)
  1. WARFARIN [Suspect]
     Indication: ATRIAL FIBRILLATION
     Dosage: UNK
     Route: 065

REACTIONS (4)
  - Upper airway obstruction [Recovering/Resolving]
  - Tongue haemorrhage [None]
  - Tongue haematoma [Recovering/Resolving]
  - International normalised ratio increased [Recovering/Resolving]
